FAERS Safety Report 14256787 (Version 4)
Quarter: 2018Q1

REPORT INFORMATION
  Report Type: Report from Study
  Country: US (occurrence: US)
  Receive Date: 20171206
  Receipt Date: 20180213
  Transmission Date: 20180508
  Serious: Yes (Hospitalization, Other)
  Sender: FDA-Public Use
  Company Number: US-EXELIXIS-XL18417011522

PATIENT
  Age: 24 Year
  Sex: Female
  Weight: 45.8 kg

DRUGS (3)
  1. NIVOLUMAB BMS [Suspect]
     Active Substance: NIVOLUMAB
     Indication: RENAL CELL CARCINOMA
     Dosage: 1 MG/KG OVER 60 MINUTES ON DAY 1
     Route: 042
     Dates: start: 20170906, end: 20170925
  2. IPILIMUMAB [Suspect]
     Active Substance: IPILIMUMAB
     Indication: RENAL CELL CARCINOMA
     Dosage: 3 MG/KG OVER 90 MINUTES ON DAY 1
     Route: 042
     Dates: start: 20170906, end: 20170925
  3. XL184 [Suspect]
     Active Substance: CABOZANTINIB
     Indication: RENAL CELL CARCINOMA
     Dosage: 40 MG, QD
     Route: 048
     Dates: start: 20170906, end: 20171015

REACTIONS (7)
  - Back pain [Unknown]
  - Dyspnoea [Unknown]
  - Lipase increased [Unknown]
  - Amylase increased [Unknown]
  - Pain in extremity [Unknown]
  - Pleural effusion [Not Recovered/Not Resolved]
  - Hemiparesis [Unknown]

NARRATIVE: CASE EVENT DATE: 20171009
